FAERS Safety Report 7172814-9 (Version None)
Quarter: 2010Q4

REPORT INFORMATION
  Report Type: 
  Country: None (occurrence: None)
  Receive Date: 20101219
  Receipt Date: 20100214
  Transmission Date: 20110411
  Serious: No
  Sender: FDA-Public Use
  Company Number: US-AMGEN-KDL392807

PATIENT

DRUGS (1)
  1. ENBREL [Suspect]
     Indication: RHEUMATOID ARTHRITIS
     Dosage: 50 MG, QWK
     Route: 058
     Dates: start: 20021126

REACTIONS (4)
  - EYE INFECTION VIRAL [None]
  - INCREASED TENDENCY TO BRUISE [None]
  - MUSCLE TWITCHING [None]
  - OCULAR HYPERAEMIA [None]
